FAERS Safety Report 7185394-9 (Version None)
Quarter: 2010Q4

REPORT INFORMATION
  Report Type: 
  Country: None (occurrence: None)
  Receive Date: 20101222
  Receipt Date: 20100603
  Transmission Date: 20110411
  Serious: Yes (Other)
  Sender: FDA-Public Use
  Company Number: US-AMGEN-QUU413805

PATIENT

DRUGS (6)
  1. ENBREL [Suspect]
     Indication: PSORIATIC ARTHROPATHY
     Dosage: 50 MG, QWK
     Route: 058
     Dates: start: 20090811
  2. METHOTREXATE [Concomitant]
  3. CELECOXIB [Concomitant]
  4. DULOXETIME HYDROCHLORIDE [Concomitant]
  5. LAMOTRIGINE [Concomitant]
  6. ZOLPIDEM TARTRATE [Concomitant]

REACTIONS (5)
  - ARTHRALGIA [None]
  - ARTHROPATHY [None]
  - BACK PAIN [None]
  - PAIN IN EXTREMITY [None]
  - PROSTATE CANCER [None]
